FAERS Safety Report 9797193 (Version 1)
Quarter: 2014Q1

REPORT INFORMATION
  Report Type: Spontaneous
  Country: US (occurrence: US)
  Receive Date: 20140106
  Receipt Date: 20140106
  Transmission Date: 20141002
  Serious: Yes (Other)
  Sender: FDA-Public Use
  Company Number: US-GE HEALTHCARE MEDICAL DIAGNOSTICS-OSCN-PR-1312S-0135

PATIENT
  Age: 60 Year
  Sex: Male

DRUGS (12)
  1. OMNISCAN [Suspect]
     Indication: RENAL FAILURE
     Dates: start: 20050419, end: 20050419
  2. OMNISCAN [Suspect]
     Indication: PERIPHERAL VASCULAR DISORDER
     Dates: start: 19981120, end: 19981120
  3. OMNISCAN [Suspect]
     Dates: start: 20020531, end: 20020531
  4. OMNISCAN [Suspect]
     Dates: start: 20030325, end: 20030325
  5. GADOLINIUM (UNSPECIFIED) [Suspect]
     Indication: PRODUCT USED FOR UNKNOWN INDICATION
     Dates: start: 20030325, end: 20030325
  6. GADOLINIUM (UNSPECIFIED) [Suspect]
     Indication: PRODUCT USED FOR UNKNOWN INDICATION
     Dates: start: 20031002, end: 20031002
  7. GADOLINIUM (UNSPECIFIED) [Suspect]
     Dates: start: 20050419, end: 20050419
  8. MAGNEVIST [Suspect]
     Dates: start: 20051116, end: 20051116
  9. MAGNEVIST [Suspect]
     Dates: start: 20051118, end: 20051118
  10. MAGNEVIST [Suspect]
     Dates: start: 20051129, end: 20051129
  11. MAGNEVIST [Suspect]
     Dates: start: 20051219, end: 20051219
  12. MAGNEVIST [Suspect]
     Dates: start: 20060923, end: 20060923

REACTIONS (1)
  - Nephrogenic systemic fibrosis [Not Recovered/Not Resolved]
